FAERS Safety Report 6573639-5 (Version None)
Quarter: 2010Q1

REPORT INFORMATION
  Report Type: 
  Country: None (occurrence: None)
  Receive Date: 20100208
  Receipt Date: 20100201
  Transmission Date: 20100710
  Serious: Yes (Other)
  Sender: FDA-Public Use
  Company Number: AU-ROCHE-682832

PATIENT
  Sex: Male

DRUGS (2)
  1. ROACCUTANE [Suspect]
     Indication: DRUG USE FOR UNKNOWN INDICATION
     Route: 065
     Dates: start: 20051201
  2. ROACCUTANE [Suspect]
     Dosage: RESTARTED SECOND COURSE
     Route: 065

REACTIONS (2)
  - ACNE [None]
  - NON-HODGKIN'S LYMPHOMA [None]
